FAERS Safety Report 6429740-X (Version None)
Quarter: 2009Q4

REPORT INFORMATION
  Report Type: 
  Country: None (occurrence: None)
  Receive Date: 20091103
  Receipt Date: 20091019
  Transmission Date: 20100525
  Serious: Yes (Hospitalization)
  Sender: FDA-Public Use
  Company Number: 02100-JPN-07-0053

PATIENT
  Age: 61 Year
  Sex: Male

DRUGS (10)
  1. PLETAL [Suspect]
     Indication: CEREBRAL INFARCTION
     Dosage: 100 MG, BID ORAL ; ORAL
     Route: 048
     Dates: start: 20041001, end: 20041004
  2. PLETAL [Suspect]
     Indication: CEREBRAL INFARCTION
     Dosage: 100 MG, BID ORAL ; ORAL
     Route: 048
     Dates: start: 20041005, end: 20070117
  3. SELBEX (TEPRENONE) [Concomitant]
  4. PRAVASTATIN [Concomitant]
  5. BASEN (VOGLIBOSE) [Concomitant]
  6. ANTEBATE: OINTMENT (BETAMETHASONE BUTYRATE) [Concomitant]
  7. KERATINAMIN (UREA) [Concomitant]
  8. NERISONE [Concomitant]
  9. NIZORAL [Concomitant]
  10. KETOPROFEN [Concomitant]

REACTIONS (6)
  - ABDOMINAL PAIN UPPER [None]
  - ANAEMIA [None]
  - COLONIC POLYP [None]
  - GASTRIC CANCER [None]
  - PYREXIA [None]
  - RECTAL POLYP [None]
